FAERS Safety Report 6226859-3 (Version None)
Quarter: 2009Q2

REPORT INFORMATION
  Report Type: 
  Country: None (occurrence: None)
  Receive Date: 20090612
  Receipt Date: 20090529
  Transmission Date: 20091009
  Serious: Yes (Other)
  Sender: FDA-Public Use
  Company Number: US-ABBOTT-09P-163-0575579-00

PATIENT
  Sex: Male
  Weight: 83.99 kg

DRUGS (15)
  1. HUMIRA [Suspect]
     Indication: PSORIATIC ARTHROPATHY
     Route: 058
     Dates: start: 20061101, end: 20081101
  2. HUMIRA [Suspect]
     Indication: PSORIASIS
     Route: 058
     Dates: start: 20090428
  3. HUMIRA [Suspect]
     Dosage: LOADING DOSE OF 80 MG
  4. COREG [Concomitant]
     Indication: CARDIAC DISORDER
     Route: 048
  5. ALDACTONE [Concomitant]
     Indication: CARDIAC DISORDER
     Route: 048
  6. PLAVIX [Concomitant]
     Indication: ANTICOAGULANT THERAPY
     Route: 048
  7. ASPIRIN [Concomitant]
     Indication: CARDIAC DISORDER
     Route: 048
  8. LASIX [Concomitant]
     Indication: DIURETIC THERAPY
     Route: 048
  9. LEXAPRO [Concomitant]
     Indication: ANXIETY
     Route: 048
  10. FLOMAX [Concomitant]
     Indication: BENIGN PROSTATIC HYPERPLASIA
     Route: 048
  11. CRESTOR [Concomitant]
     Indication: BLOOD CHOLESTEROL
     Route: 048
  12. LISINOPRIL [Concomitant]
     Indication: CARDIAC DISORDER
     Route: 048
  13. DIGOXIN [Concomitant]
     Indication: CARDIAC DISORDER
     Route: 048
  14. IMDUR [Concomitant]
     Indication: CARDIAC DISORDER
  15. NITROLINGUAL [Concomitant]
     Indication: ANGINA PECTORIS
     Route: 060

REACTIONS (3)
  - ANGINA PECTORIS [None]
  - DRUG DOSE OMISSION [None]
  - PSORIASIS [None]
